FAERS Safety Report 6032226-8 (Version None)
Quarter: 2009Q1

REPORT INFORMATION
  Report Type: 
  Country: None (occurrence: None)
  Receive Date: 20090108
  Receipt Date: 20081224
  Transmission Date: 20090719
  Serious: No
  Sender: FDA-Public Use
  Company Number: US-B.I. PHARMACEUTICALS,INC./RIDGEFIELD-2008-BP-15613BP

PATIENT
  Age: 53 Year
  Sex: Female

DRUGS (24)
  1. MICARDIS [Suspect]
     Indication: HYPERTENSION
     Dosage: 80MG
     Route: 048
     Dates: start: 20071001, end: 20081119
  2. ASPIRIN [Concomitant]
  3. PRILOSEC [Concomitant]
     Dosage: 40MG
  4. DILTIAZEM HCL [Concomitant]
     Dosage: 300MG
  5. PLAVIX [Concomitant]
     Dosage: 75MG
  6. SYNTHROID [Concomitant]
     Dosage: 175MCG
  7. LIPITOR [Concomitant]
     Dosage: 40MG
  8. MOTRIN [Concomitant]
     Dosage: 2400MG
  9. LOVAZA [Concomitant]
     Dosage: 4000MG
  10. PRESTIG [Concomitant]
  11. LYRICA [Concomitant]
     Dosage: 150MG
  12. JANUMET [Concomitant]
  13. AMBIEN [Concomitant]
  14. COLACE [Concomitant]
     Dosage: 200MG
  15. ATACARD [Concomitant]
  16. RITALIN [Concomitant]
  17. CALCARB 600 WITH VD 1200MG [Concomitant]
  18. VITAMIN B COMPLEX CAP [Concomitant]
  19. CENTRUM SILVER MV [Concomitant]
  20. VICODIN [Concomitant]
  21. NITROLINGUAL [Concomitant]
  22. SYNVISC [Concomitant]
  23. CPAP [Concomitant]
  24. SODIUM HYALURONATE [Concomitant]

REACTIONS (3)
  - FATIGUE [None]
  - RASH [None]
  - SOMNOLENCE [None]
